FAERS Safety Report 5122567-0 (Version None)
Quarter: 2006Q4

REPORT INFORMATION
  Report Type: 
  Country: None (occurrence: None)
  Receive Date: 20061009
  Receipt Date: 20060925
  Transmission Date: 20070319
  Serious: Yes (Hospitalization)
  Sender: FDA-Public Use
  Company Number: PHRM2006FR02644

PATIENT
  Age: 60 Year
  Sex: Male

DRUGS (4)
  1. TEGRETOL [Suspect]
     Route: 048
  2. TIAPRIDAL [Suspect]
     Route: 048
  3. TAHOR [Suspect]
     Route: 048
  4. PREVISCAN [Concomitant]
     Route: 048

REACTIONS (9)
  - ALANINE AMINOTRANSFERASE INCREASED [None]
  - ASPARTATE AMINOTRANSFERASE INCREASED [None]
  - BLOOD ALKALINE PHOSPHATASE INCREASED [None]
  - CYTOLYTIC HEPATITIS [None]
  - FACTOR V DEFICIENCY [None]
  - GAMMA-GLUTAMYLTRANSFERASE INCREASED [None]
  - HEPATITIS TOXIC [None]
  - KINESITHERAPY [None]
  - LUNG DISORDER [None]
